FAERS Safety Report 4675837-4 (Version None)
Quarter: 2005Q2

REPORT INFORMATION
  Report Type: 
  Country: None (occurrence: None)
  Receive Date: 20050527
  Receipt Date: 20031211
  Transmission Date: 20051028
  Serious: Yes (Hospitalization, Other)
  Sender: FDA-Public Use
  Company Number: MX-BOEHRINGER INGELHEIM PHARMACEUTICALS, INC.-2003-BP-10527MX

PATIENT
  Sex: Male
  Weight: 82 kg

DRUGS (2)
  1. SECOTEX CAPSULES 0.4MG [Suspect]
     Indication: BENIGN PROSTATIC HYPERPLASIA
     Route: 048
     Dates: start: 20030909
  2. SECOTEX CAPSULES 0.4MG [Suspect]
     Indication: PROSTATITIS

REACTIONS (3)
  - DRUG INEFFECTIVE [None]
  - METASTASES TO BLADDER [None]
  - PROSTATE CANCER [None]
